FAERS Safety Report 11755210 (Version 1)
Quarter: 2015Q4

REPORT INFORMATION
  Report Type: Spontaneous
  Country: US (occurrence: None)
  Receive Date: 20151118
  Receipt Date: 20151118
  Transmission Date: 20160304
  Serious: Yes (Hospitalization, Disabling)
  Sender: FDA-Public Use
  Company Number: None

PATIENT
  Age: 47 Year
  Sex: Male
  Weight: 116.58 kg

DRUGS (8)
  1. BACLOFEN. [Concomitant]
     Active Substance: BACLOFEN
  2. MELOXICAM. [Concomitant]
     Active Substance: MELOXICAM
  3. OMPRAZOLE [Concomitant]
     Active Substance: OMEPRAZOLE
  4. FORTEO [Suspect]
     Active Substance: TERIPARATIDE
     Indication: OSTEOPOROSIS
     Dosage: 1 INJECTION FROM PEN, ONCE DAILY, GIVEN INTO/UNDER THE SKIN
     Route: 030
     Dates: start: 20151009, end: 20151016
  5. GABAPENTIN. [Concomitant]
     Active Substance: GABAPENTIN
  6. CALCIUM CIT-RATE [Concomitant]
  7. DULOXETINE. [Concomitant]
     Active Substance: DULOXETINE
  8. OXYCODONE [Concomitant]
     Active Substance: OXYCODONE

REACTIONS (5)
  - Gastroenteritis bacterial [None]
  - Muscle abscess [None]
  - Product quality issue [None]
  - Immune system disorder [None]
  - Sepsis [None]

NARRATIVE: CASE EVENT DATE: 20151017
